FAERS Safety Report 6227693-0 (Version None)
Quarter: 2009Q2

REPORT INFORMATION
  Report Type: 
  Country: None (occurrence: None)
  Receive Date: 20090612
  Receipt Date: 20090610
  Transmission Date: 20091009
  Serious: Yes (Death)
  Sender: FDA-Public Use
  Company Number: PHHY2008MX30158

PATIENT
  Age: 81 Year
  Sex: Female

DRUGS (1)
  1. DIOVAN HCT [Suspect]
     Indication: HYPERTENSION
     Dosage: 1 TABLET (160/25 MG) PER DAY
     Route: 048
     Dates: start: 20060801, end: 20081109

REACTIONS (4)
  - CARDIO-RESPIRATORY ARREST [None]
  - EMPHYSEMA [None]
  - PULMONARY INFARCTION [None]
  - RENAL FAILURE [None]
